FAERS Safety Report 5532242-6 (Version None)
Quarter: 2007Q4

REPORT INFORMATION
  Report Type: 
  Country: None (occurrence: None)
  Receive Date: 20071129
  Receipt Date: 20071129
  Transmission Date: 20080405
  Serious: Yes (Death, Hospitalization)
  Sender: FDA-Public Use
  Company Number: None

PATIENT
  Age: 54 Year
  Sex: Male

DRUGS (1)
  1. THALIDOMIDE [Suspect]
     Indication: AMYOTROPHIC LATERAL SCLEROSIS
     Dosage: 300MG/DAILY
     Dates: start: 20070323, end: 20071101

REACTIONS (3)
  - DISEASE PROGRESSION [None]
  - DYSPNOEA [None]
  - ILL-DEFINED DISORDER [None]
